FAERS Safety Report 8827953 (Version 1)
Quarter: 2012Q4

REPORT INFORMATION
  Report Type: 
  Country: US (occurrence: US)
  Receive Date: 20121005
  Receipt Date: 20121005
  Transmission Date: 20130627
  Serious: No
  Sender: FDA-Public Use
  Company Number: US-PFIZER INC-2012245050

PATIENT
  Age: 79 Year
  Sex: Male
  Weight: 63.04 kg

DRUGS (1)
  1. LYRICA [Suspect]
     Indication: NEUROPATHY PERIPHERAL
     Dosage: 50 mg, 2x/day
     Dates: start: 201205, end: 201205

REACTIONS (1)
  - Drug ineffective [Unknown]
